FAERS Safety Report 10404271 (Version 1)
Quarter: 2014Q1

REPORT INFORMATION
  Report Type: Spontaneous
  Country: US (occurrence: None)
  Receive Date: 20140214
  Receipt Date: 20140214
  Transmission Date: 20141002
  Serious: Yes (Hospitalization)
  Sender: FDA-Public Use
  Company Number: 1000041689

PATIENT
  Age: 77 Year
  Sex: 0

DRUGS (11)
  1. BYSTOLIC (NEBIVOLOL HYDROCHLORIDE) [Suspect]
     Dosage: 20 MG (10 MG,2 IN 1 D)
  2. SAXAGLIPTIN [Suspect]
     Indication: TYPE 2 DIABETES MELLITUS
     Dates: start: 20110217
  3. NPH INSULIN [Suspect]
     Indication: TYPE 2 DIABETES MELLITUS
  4. INSULIN ASPART (INSULIN ASPART) [Suspect]
     Indication: TYPE 2 DIABETES MELLITUS
  5. PLACEBO (PLACEBO) [Suspect]
     Indication: TYPE 2 DIABETES MELLITUS
     Dates: start: 20110217
  6. COREG (CARVEDILOL) [Suspect]
     Dosage: 12.5 MG (6.25 MG,2 IN 1 D)
  7. MULTAQ (DRONEDARONE HYDROCHLORIDE) [Suspect]
     Dosage: 800 MG (400 MG,2 IN 1 D)
  8. ASPIRIN (ACETYLSALICYLIC ACID) [Concomitant]
  9. NIACIN (NICOTINIC ACID) [Concomitant]
  10. LEVOTHYROXINE (LEVOTHYROXINE SODIUM) [Concomitant]
  11. ROBITUSSIN AC (CODIENE PHOS W/GUAIFENESIN/PHENIRAMINE MAL.) [Concomitant]

REACTIONS (1)
  - Bradycardia [None]
